FAERS Safety Report 9322475 (Version 1)
Quarter: 2013Q2

REPORT INFORMATION
  Report Type: Spontaneous
  Country: GB (occurrence: GB)
  Receive Date: 20130531
  Receipt Date: 20130531
  Transmission Date: 20140414
  Serious: Yes (Hospitalization)
  Sender: FDA-Public Use
  Company Number: GB-MYLANLABS-2013S1010993

PATIENT
  Age: 54 Year
  Sex: Male
  Weight: 81.64 kg

DRUGS (2)
  1. BACLOFEN [Suspect]
     Indication: MUSCLE STRAIN
     Route: 048
     Dates: start: 20120109, end: 20120109
  2. CALMURID /00028601/ [Concomitant]
     Indication: ICHTHYOSIS

REACTIONS (10)
  - Hypopnoea [Recovered/Resolved]
  - Confusional state [Recovered/Resolved]
  - Vision blurred [Recovered/Resolved]
  - Metamorphopsia [Recovered/Resolved]
  - Dizziness [Recovered/Resolved]
  - Chills [Recovered/Resolved]
  - Speech disorder [Recovered/Resolved]
  - Paraesthesia [Recovered/Resolved]
  - Tremor [Recovered/Resolved]
  - Pollakiuria [Recovered/Resolved]
